FAERS Safety Report 16703151 (Version 1)
Quarter: 2019Q3

REPORT INFORMATION
  Report Type: Spontaneous
  Country: JP (occurrence: JP)
  Receive Date: 20190814
  Receipt Date: 20190814
  Transmission Date: 20191004
  Serious: Yes (Other)
  Sender: FDA-Public Use
  Company Number: JP-NAPPMUNDI-GBR-2019-0069207

PATIENT
  Age: 65 Year
  Sex: Male

DRUGS (2)
  1. OXIFAST [Suspect]
     Active Substance: OXYCODONE
     Indication: THYROID CANCER
     Dosage: 72 MG, DAILY
     Route: 065
  2. METHADONE HYDROCHLORIDE. [Suspect]
     Active Substance: METHADONE HYDROCHLORIDE
     Indication: THYROID CANCER
     Dosage: 5 MG, DAILY
     Route: 048

REACTIONS (1)
  - Delirium [Recovered/Resolved]
